FAERS Safety Report 4338857-5 (Version None)
Quarter: 2004Q2

REPORT INFORMATION
  Report Type: 
  Country: None (occurrence: None)
  Receive Date: 20040409
  Receipt Date: 20040325
  Transmission Date: 20050107
  Serious: Yes (Hospitalization, Other)
  Sender: FDA-Public Use
  Company Number: S04-GER-01384-01

PATIENT
  Sex: Male

DRUGS (3)
  1. CITALOPRAM HYDROBROMIDE [Suspect]
     Indication: DEPRESSION
     Dates: end: 20040201
  2. CITALOPRAM HYDROBROMIDE [Suspect]
     Indication: DEPRESSION
     Dates: start: 20040320
  3. FURADANTIN [Suspect]
     Indication: URINARY TRACT INFECTION
     Dates: start: 20040101, end: 20040201

REACTIONS (6)
  - DERMATITIS [None]
  - EOSINOPHILIA [None]
  - EXCORIATION [None]
  - LEUKOCYTOSIS [None]
  - PRURITUS [None]
  - URINARY TRACT INFECTION [None]
